FAERS Safety Report 16414685 (Version 2)
Quarter: 2019Q2

REPORT INFORMATION
  Report Type: Spontaneous
  Country: RO (occurrence: RO)
  Receive Date: 20190611
  Receipt Date: 20190619
  Transmission Date: 20190711
  Serious: Yes (Hospitalization, Other)
  Sender: FDA-Public Use
  Company Number: RO-B.I. PHARMACEUTICALS,INC./RIDGEFIELD-2019-BI-025135

PATIENT
  Age: 73 Year
  Sex: Female

DRUGS (1)
  1. PRADAXA [Suspect]
     Active Substance: DABIGATRAN ETEXILATE MESYLATE
     Indication: ATRIAL FIBRILLATION
     Route: 065

REACTIONS (3)
  - Bladder cancer recurrent [Unknown]
  - Haematuria [Unknown]
  - Dysarthria [Unknown]
